FAERS Safety Report 20098729 (Version 6)
Quarter: 2023Q1

REPORT INFORMATION
  Report Type: Spontaneous
  Country: US (occurrence: US)
  Receive Date: 20211122
  Receipt Date: 20230303
  Transmission Date: 20230418
  Serious: Yes (Other)
  Sender: FDA-Public Use
  Company Number: US-SA-SAC20211117001577

PATIENT
  Age: 40 Year
  Sex: Male

DRUGS (1)
  1. AUBAGIO [Suspect]
     Active Substance: TERIFLUNOMIDE
     Indication: Multiple sclerosis
     Dosage: 14 MG, QD
     Route: 048
     Dates: start: 20210728

REACTIONS (12)
  - Haematochezia [Unknown]
  - Joint instability [Unknown]
  - Asthenia [Unknown]
  - Muscle spasms [Unknown]
  - Acne [Unknown]
  - Mental status changes [Unknown]
  - General physical condition abnormal [Unknown]
  - Disturbance in attention [Unknown]
  - Peripheral coldness [Unknown]
  - Alopecia [Unknown]
  - Hypoaesthesia [Unknown]
  - Paraesthesia [Unknown]
